FAERS Safety Report 8473437-1 (Version None)
Quarter: 2012Q2

REPORT INFORMATION
  Report Type: 
  Country: None (occurrence: None)
  Receive Date: 20120628
  Receipt Date: 20120626
  Transmission Date: 20120825
  Serious: Yes (Death)
  Sender: FDA-Public Use
  Company Number: US-ELI_LILLY_AND_COMPANY-US201205010863

PATIENT
  Sex: Male
  Weight: 60.317 kg

DRUGS (16)
  1. GEMZAR [Suspect]
     Indication: ADENOCARCINOMA
     Dosage: 1740 MG, DAY 1, 8 EVERY 21 DAYS
     Route: 042
     Dates: start: 20100526, end: 20110912
  2. LEVOTHYROXINE [Concomitant]
     Dosage: 200 UG, QD
  3. MIRALAX [Concomitant]
     Dosage: 17 MG, PRN
  4. ATIVAN [Concomitant]
     Dosage: 0.5 MG, PRN
     Route: 048
  5. DEXAMETHASONE [Concomitant]
     Dosage: 4 MG, QD
     Route: 048
  6. LASIX [Concomitant]
     Dosage: 40 MG, QD
     Route: 048
  7. DULCOLAX [Concomitant]
     Dosage: UNK, PRN
  8. ALDACTONE [Concomitant]
     Dosage: 25 MG, QD
     Route: 048
  9. POTASSIUM CHLORIDE [Concomitant]
     Dosage: 40 MEQ, BID
     Route: 048
  10. PEPCID [Concomitant]
     Dosage: 20 MG, BID
  11. FENTANYL [Concomitant]
     Dosage: 100 UG, PER HOUR, 2 PATCHES EVERY 3 DAYS
  12. SENNA PLUS [Concomitant]
     Dosage: UNK, PRN
  13. COQ10 [Concomitant]
     Dosage: 120 MG, QD
  14. OXYCODONE HCL [Concomitant]
     Dosage: 15 MG, PRN
     Route: 048
  15. MAGNESIUM OXIDE [Concomitant]
     Dosage: 250 MG, QD
  16. ZOLOFT [Concomitant]
     Dosage: 100 MG, QD

REACTIONS (1)
  - NEOPLASM PROGRESSION [None]
